FAERS Safety Report 6398273-1 (Version None)
Quarter: 2009Q4

REPORT INFORMATION
  Report Type: 
  Country: None (occurrence: None)
  Receive Date: 20091013
  Receipt Date: 20091007
  Transmission Date: 20100525
  Serious: Yes (Life-Threatening, Hospitalization)
  Sender: FDA-Public Use
  Company Number: DE-AVENTIS-200910698DE

PATIENT
  Age: 71 Year
  Sex: Female
  Weight: 85 kg

DRUGS (2)
  1. TAXOTERE [Suspect]
     Route: 042
     Dates: start: 20081029, end: 20081029
  2. CYCLOPHOSPHAMIDE [Suspect]
     Dates: start: 20081029

REACTIONS (5)
  - BLOOD CREATININE INCREASED [None]
  - NECROSIS [None]
  - PURPURA FULMINANS [None]
  - RENAL FAILURE ACUTE [None]
  - RHABDOMYOLYSIS [None]
